FAERS Safety Report 10974179 (Version 1)
Quarter: 2015Q2

REPORT INFORMATION
  Report Type: Spontaneous
  Country: GB (occurrence: GB)
  Receive Date: 20150401
  Receipt Date: 20150401
  Transmission Date: 20150821
  Serious: Yes (Disabling)
  Sender: FDA-Public Use
  Company Number: GB-TEVA-550833ACC

PATIENT
  Age: 83 Year
  Sex: Female

DRUGS (4)
  1. SYMBICORT [Concomitant]
     Active Substance: BUDESONIDE\FORMOTEROL FUMARATE DIHYDRATE
     Dosage: BUDESONIDE200/EFORMOTEROL FUMERATE DIHYDRATE 6
  2. AMITRIPTYLINE [Concomitant]
     Active Substance: AMITRIPTYLINE
     Dosage: 10 MILLIGRAM DAILY; NOCTE;  DAILY DOSE: 10 MILLIGRAM
  3. NAPROXEN. [Concomitant]
     Active Substance: NAPROXEN
     Dosage: 750 MILLIGRAM DAILY; 250MG UP TO TID; DAILY DOSE: 750MILLIGRAM
  4. INDAPAMIDE. [Suspect]
     Active Substance: INDAPAMIDE
     Indication: HYPERTENSION
     Dosage: 1.5 MILLIGRAM DAILY; MODIFIED-RELEASE TABLET; DAILY DOSE: 1.5MILLIGRAM
     Route: 048
     Dates: start: 20141028, end: 20150123

REACTIONS (3)
  - Cognitive disorder [Recovered/Resolved]
  - Oedema peripheral [Unknown]
  - Memory impairment [Recovered/Resolved]

NARRATIVE: CASE EVENT DATE: 20141028
